FAERS Safety Report 15841794 (Version 2)
Quarter: 2019Q2

REPORT INFORMATION
  Report Type: Report from Study
  Country: GB (occurrence: GB)
  Receive Date: 20190118
  Receipt Date: 20190619
  Transmission Date: 20190711
  Serious: Yes (Death, Hospitalization)
  Sender: FDA-Public Use
  Company Number: PHHY2018GB190081

PATIENT
  Age: 75 Year
  Sex: Female

DRUGS (1)
  1. SANDOSTATIN LAR DEPOT [Suspect]
     Active Substance: OCTREOTIDE ACETATE
     Indication: NEUROENDOCRINE TUMOUR
     Dosage: 30 MG, QMO (EVERY 4 WEEKS)
     Route: 030

REACTIONS (7)
  - Death [Fatal]
  - Abdominal pain [Unknown]
  - Fall [Unknown]
  - Oxygen saturation decreased [Unknown]
  - Constipation [Unknown]
  - Pulmonary oedema [Unknown]
  - Needle issue [Unknown]

NARRATIVE: CASE EVENT DATE: 20190513
